FAERS Safety Report 18497271 (Version 1)
Quarter: 2020Q4

REPORT INFORMATION
  Report Type: Spontaneous
  Country: FR (occurrence: FR)
  Receive Date: 20201112
  Receipt Date: 20201112
  Transmission Date: 20210114
  Serious: Yes (Other)
  Sender: FDA-Public Use
  Company Number: FR-FRESENIUS KABI-FK202012032

PATIENT
  Age: 32 Year
  Sex: Male

DRUGS (2)
  1. DOCETAXEL (MANUFACTURER UNKNOWN) [Suspect]
     Active Substance: DOCETAXEL
     Indication: GLOMUS TUMOUR
     Route: 065
  2. GEMCITABINE. [Suspect]
     Active Substance: GEMCITABINE
     Indication: GLOMUS TUMOUR
     Route: 065

REACTIONS (1)
  - Erectile dysfunction [Recovering/Resolving]
